FAERS Safety Report 9253701 (Version 1)
Quarter: 2013Q2

REPORT INFORMATION
  Report Type: Spontaneous
  Country: US (occurrence: US)
  Receive Date: 20130425
  Receipt Date: 20130425
  Transmission Date: 20140414
  Serious: No
  Sender: FDA-Public Use
  Company Number: US-009507513-1304USA003732

PATIENT
  Age: 55 Year
  Sex: Male

DRUGS (1)
  1. ZETIA [Suspect]
     Dosage: 10 MG, QD
     Route: 048
     Dates: start: 20130208

REACTIONS (1)
  - Pruritus [Not Recovered/Not Resolved]
